FAERS Safety Report 9742726 (Version 1)
Quarter: 2013Q4

REPORT INFORMATION
  Report Type: Spontaneous
  Country: US (occurrence: US)
  Receive Date: 20131210
  Receipt Date: 20131210
  Transmission Date: 20140711
  Serious: No
  Sender: FDA-Public Use
  Company Number: US-GILEAD-2009-0025850

PATIENT
  Sex: Female
  Weight: 74.84 kg

DRUGS (15)
  1. LETAIRIS [Suspect]
     Indication: PULMONARY ARTERIAL HYPERTENSION
     Route: 048
     Dates: start: 20091127
  2. NIFEDICAL XL [Concomitant]
  3. NITROQUICK [Concomitant]
  4. FUROSEMIDE [Concomitant]
  5. CELLCEPT [Concomitant]
  6. ALBUTEROL INHALER [Concomitant]
  7. OXYGEN [Concomitant]
  8. METHADONE HCL [Concomitant]
  9. LYRICA [Concomitant]
  10. TRAMADOL HCL [Concomitant]
  11. ALPRAZOLAM [Concomitant]
  12. PREDNISONE [Concomitant]
  13. AVELOX [Concomitant]
  14. CELEXA [Concomitant]
  15. VITAMIN D [Concomitant]

REACTIONS (1)
  - Pyrexia [Unknown]
